FAERS Safety Report 6499201-0 (Version None)
Quarter: 2009Q4

REPORT INFORMATION
  Report Type: 
  Country: None (occurrence: None)
  Receive Date: 20091215
  Receipt Date: 20091209
  Transmission Date: 20100525
  Serious: Yes (Hospitalization)
  Sender: FDA-Public Use
  Company Number: US-ELI_LILLY_AND_COMPANY-US200912002290

PATIENT
  Sex: Female

DRUGS (3)
  1. HUMALOG [Suspect]
     Indication: DIABETES MELLITUS
     Dosage: UNK, AS NEEDED
     Dates: start: 19820101, end: 20090901
  2. HUMALOG [Suspect]
     Dosage: UNK, AS NEEDED
     Dates: start: 20090901
  3. LANTUS [Concomitant]

REACTIONS (4)
  - BALANCE DISORDER [None]
  - BLOOD GLUCOSE INCREASED [None]
  - CARDIAC VALVE REPLACEMENT COMPLICATION [None]
  - HEART VALVE REPLACEMENT [None]
